FAERS Safety Report 9350641 (Version 2)
Quarter: 2013Q3

REPORT INFORMATION
  Report Type: Report from Study
  Country: DE (occurrence: DE)
  Receive Date: 20130617
  Receipt Date: 20130823
  Transmission Date: 20140515
  Serious: Yes (Hospitalization)
  Sender: FDA-Public Use
  Company Number: DE-JNJFOC-20130609078

PATIENT
  Sex: Female
  Weight: 74 kg

DRUGS (12)
  1. XARELTO [Suspect]
     Indication: THROMBOSIS PROPHYLAXIS
     Route: 048
     Dates: start: 20121027, end: 20130330
  2. XARELTO [Suspect]
     Indication: THROMBOSIS PROPHYLAXIS
     Route: 048
     Dates: start: 20130408
  3. XARELTO [Suspect]
     Indication: CEREBROVASCULAR ACCIDENT PROPHYLAXIS
     Route: 048
     Dates: start: 20121027, end: 20130330
  4. XARELTO [Suspect]
     Indication: CEREBROVASCULAR ACCIDENT PROPHYLAXIS
     Route: 048
     Dates: start: 20130408
  5. SIMVASTATIN [Concomitant]
     Route: 065
     Dates: start: 20121025, end: 20130331
  6. METOPROLOL [Concomitant]
     Route: 065
     Dates: start: 20121025
  7. TEBONIN [Concomitant]
     Route: 065
     Dates: start: 20111001
  8. OXIS [Concomitant]
     Route: 065
     Dates: start: 20130401
  9. OXIS [Concomitant]
     Route: 065
     Dates: start: 20120401, end: 20130331
  10. ZYLORIC [Concomitant]
     Route: 065
     Dates: start: 20121025
  11. OXAZEPAM [Concomitant]
     Route: 065
     Dates: start: 20071001
  12. RAMIPRIL [Concomitant]
     Route: 065
     Dates: start: 20101001

REACTIONS (2)
  - Fall [Recovered/Resolved]
  - Haematoma [Recovered/Resolved]
